FAERS Safety Report 7027178-8 (Version None)
Quarter: 2010Q4

REPORT INFORMATION
  Report Type: 
  Country: None (occurrence: None)
  Receive Date: 20101004
  Receipt Date: 20100928
  Transmission Date: 20110411
  Serious: No
  Sender: FDA-Public Use
  Company Number: US-PFIZER INC-2010123371

PATIENT
  Sex: Female
  Weight: 92.971 kg

DRUGS (4)
  1. TIKOSYN [Suspect]
     Indication: HEART RATE INCREASED
     Dosage: 125 UG, 2X/DAY
     Route: 048
     Dates: start: 20100809
  2. METOPROLOL [Suspect]
     Indication: HEART RATE INCREASED
     Dosage: 25 MG, DAILY
     Route: 048
     Dates: start: 20100801
  3. SYNTHROID [Concomitant]
     Indication: HYPERTHYROIDISM
     Dosage: 0.1 MG, DAILY
     Route: 048
  4. WARFARIN [Concomitant]
     Indication: ANTICOAGULANT THERAPY
     Dosage: UNK
     Route: 048

REACTIONS (2)
  - BLOOD THYROID STIMULATING HORMONE DECREASED [None]
  - HEART RATE INCREASED [None]
